FAERS Safety Report 17755891 (Version 1)
Quarter: 2020Q2

REPORT INFORMATION
  Report Type: Spontaneous
  Country: US (occurrence: US)
  Receive Date: 20200506
  Receipt Date: 20200506
  Transmission Date: 20200714
  Serious: Yes (Hospitalization)
  Sender: FDA-Public Use
  Company Number: None

PATIENT
  Age: 53 Year
  Sex: Female

DRUGS (7)
  1. ORENCIA [Suspect]
     Active Substance: ABATACEPT
     Dosage: ?          OTHER FREQUENCY:EVERY7DAYS ;?
     Route: 058
     Dates: start: 20191219
  2. IRBESARTAN. [Suspect]
     Active Substance: IRBESARTAN
  3. TRAMADOL HCL [Concomitant]
     Active Substance: TRAMADOL HYDROCHLORIDE
  4. OTEZLA [Concomitant]
     Active Substance: APREMILAST
  5. DULOXETINE. [Concomitant]
     Active Substance: DULOXETINE
  6. IBUPROPION [Concomitant]
  7. CELECOXIB. [Concomitant]
     Active Substance: CELECOXIB

REACTIONS (1)
  - Condition aggravated [None]

NARRATIVE: CASE EVENT DATE: 20200405
